FAERS Safety Report 5100233-5 (Version None)
Quarter: 2006Q3

REPORT INFORMATION
  Report Type: 
  Country: None (occurrence: None)
  Receive Date: 20060731
  Receipt Date: 20060517
  Transmission Date: 20061208
  Serious: No
  Sender: FDA-Public Use
  Company Number: 2006PV013980

PATIENT
  Sex: Male
  Weight: 190.5108 kg

DRUGS (6)
  1. BYETTA [Suspect]
     Indication: DIABETES MELLITUS NON-INSULIN-DEPENDENT
     Dosage: 5 MCG;BID;SC
     Route: 058
     Dates: start: 20060511
  2. STARLIX [Concomitant]
  3. TOPROL-XL [Concomitant]
  4. PROCARDIA [Concomitant]
  5. CATAPRES [Concomitant]
  6. NITROGLYCERIN [Concomitant]

REACTIONS (3)
  - BLOOD GLUCOSE DECREASED [None]
  - BLOOD GLUCOSE INCREASED [None]
  - HYPERTENSION [None]
